FAERS Safety Report 18847791 (Version 1)
Quarter: 2021Q1

REPORT INFORMATION
  Report Type: Spontaneous
  Country: US (occurrence: US)
  Receive Date: 20210204
  Receipt Date: 20210204
  Transmission Date: 20210419
  Serious: Yes (Other)
  Sender: FDA-Public Use
  Company Number: US-GLAXOSMITHKLINE-US2021GSK028793

PATIENT
  Sex: Male

DRUGS (6)
  1. RANITIDINE. [Suspect]
     Active Substance: RANITIDINE
     Indication: FLATULENCE
     Dosage: 75 MG PRESCRIPTION
     Route: 065
     Dates: start: 200101, end: 201001
  2. RANITIDINE. [Suspect]
     Active Substance: RANITIDINE
     Dosage: 150 MG, QD
     Route: 065
     Dates: start: 200101, end: 201001
  3. RANITIDINE. [Suspect]
     Active Substance: RANITIDINE
     Indication: FLATULENCE
     Dosage: 75 MG PRESCRIPTION
     Route: 065
     Dates: start: 200101, end: 201001
  4. RANITIDINE. [Suspect]
     Active Substance: RANITIDINE
     Dosage: 150 MG, QD
     Route: 065
     Dates: start: 200101, end: 201001
  5. ZANTAC [Suspect]
     Active Substance: RANITIDINE HYDROCHLORIDE
     Indication: FLATULENCE
     Dosage: 75 MG, QD
     Route: 065
     Dates: start: 200001, end: 200101
  6. ZANTAC [Suspect]
     Active Substance: RANITIDINE HYDROCHLORIDE
     Indication: FLATULENCE
     Dosage: 75 MG, QD
     Route: 065
     Dates: start: 200001, end: 200101

REACTIONS (1)
  - Bladder cancer [Unknown]
